FAERS Safety Report 15191863 (Version 1)
Quarter: 2018Q3

REPORT INFORMATION
  Report Type: Report from Study
  Country: US (occurrence: US)
  Receive Date: 20180724
  Receipt Date: 20180724
  Transmission Date: 20181010
  Serious: Yes (Hospitalization)
  Sender: FDA-Public Use
  Company Number: US-ACTELION-A-NJ2017-153437

PATIENT
  Age: 81 Year
  Sex: Female
  Weight: 86.17 kg

DRUGS (5)
  1. TYVASO [Concomitant]
     Active Substance: TREPROSTINIL
     Dosage: UNK
     Route: 065
  2. ADEMPAS [Suspect]
     Active Substance: RIOCIGUAT
     Indication: PRODUCT USED FOR UNKNOWN INDICATION
     Dosage: 1.5 MG, UNK
     Route: 065
  3. TYVASO [Concomitant]
     Active Substance: TREPROSTINIL
     Dosage: 12 BREATHS PER SESSION
     Route: 065
  4. ADEMPAS [Suspect]
     Active Substance: RIOCIGUAT
     Dosage: 2 MG, UNK
     Route: 065
  5. TRACLEER [Suspect]
     Active Substance: BOSENTAN
     Indication: PULMONARY ARTERIAL HYPERTENSION
     Dosage: 125 MG, BID
     Route: 048

REACTIONS (26)
  - Condition aggravated [Unknown]
  - Insomnia [Unknown]
  - Productive cough [Unknown]
  - Therapy non-responder [Unknown]
  - Hospitalisation [Unknown]
  - Dyspnoea exertional [Unknown]
  - Dry mouth [Unknown]
  - Oedema [Unknown]
  - Secretion discharge [Unknown]
  - Oedema peripheral [Unknown]
  - Peripheral swelling [Unknown]
  - Dyspnoea [Recovering/Resolving]
  - Alopecia [Unknown]
  - Erythema [Unknown]
  - Feeling drunk [Unknown]
  - Hypertension [Unknown]
  - Oxygen therapy [Unknown]
  - Pericardial effusion [Unknown]
  - Hypotension [Unknown]
  - Madarosis [Unknown]
  - Constipation [Recovered/Resolved]
  - Fatigue [Unknown]
  - Blood pressure systolic decreased [Unknown]
  - Fluid retention [Unknown]
  - Dizziness [Unknown]
  - Dry skin [Unknown]

NARRATIVE: CASE EVENT DATE: 20170613
